FAERS Safety Report 5415918-0 (Version None)
Quarter: 2007Q3

REPORT INFORMATION
  Report Type: 
  Country: None (occurrence: None)
  Receive Date: 20070815
  Receipt Date: 20070803
  Transmission Date: 20080115
  Serious: Yes (Hospitalization)
  Sender: FDA-Public Use
  Company Number: DK-PFIZER INC-2007065537

PATIENT
  Sex: Female

DRUGS (2)
  1. RELPAX [Suspect]
     Indication: MIGRAINE
     Route: 048
     Dates: start: 20070228, end: 20070228
  2. VAGIFEM [Concomitant]
     Indication: OESTROGEN DEFICIENCY
     Route: 067

REACTIONS (1)
  - PARAESTHESIA [None]
